FAERS Safety Report 20231481 (Version 1)
Quarter: 2021Q4

REPORT INFORMATION
  Report Type: Spontaneous
  Country: US (occurrence: None)
  Receive Date: 20211223
  Receipt Date: 20211223
  Transmission Date: 20220303
  Serious: Yes (Other)
  Sender: FDA-Public Use
  Company Number: None

PATIENT
  Age: 20 Year
  Sex: Male
  Weight: 60.75 kg

DRUGS (1)
  1. PRIVIGEN [Suspect]
     Active Substance: HUMAN IMMUNOGLOBULIN G
     Indication: Immunodeficiency common variable
     Dosage: OTHER FREQUENCY : EVERY 4 WEEKS;?
     Route: 041
     Dates: start: 20201208

REACTIONS (5)
  - Infusion related reaction [None]
  - Pruritus [None]
  - Erythema [None]
  - Nervousness [None]
  - Throat irritation [None]

NARRATIVE: CASE EVENT DATE: 20211217
